FAERS Safety Report 11184872 (Version 1)
Quarter: 2015Q2

REPORT INFORMATION
  Report Type: Spontaneous
  Country: DE (occurrence: DE)
  Receive Date: 20150612
  Receipt Date: 20150612
  Transmission Date: 20150821
  Serious: Yes (Hospitalization)
  Sender: FDA-Public Use
  Company Number: DE-TEVA-568141GER

PATIENT
  Age: 80 Year
  Sex: Male

DRUGS (12)
  1. FOLSAN [Suspect]
     Active Substance: FOLIC ACID
     Dosage: 1 DOSAGE FORMS DAILY;
  2. OXYCODON [Suspect]
     Active Substance: OXYCODONE
     Dosage: 10 MILLIGRAM DAILY;
  3. TILIDIN 40/4 [Suspect]
     Active Substance: NALOXONE HYDROCHLORIDE\TILIDINE HYDROCHLORIDE
     Dosage: 1 DOSAGE FORMS DAILY;
  4. LYRICA [Suspect]
     Active Substance: PREGABALIN
     Dosage: 150 MILLIGRAM DAILY;
  5. LANTUS [Suspect]
     Active Substance: INSULIN GLARGINE
     Dosage: 20 IU (INTERNATIONAL UNIT) DAILY;
  6. ARCOXIA [Suspect]
     Active Substance: ETORICOXIB
     Dosage: 1 DOSAGE FORMS DAILY;
  7. TOREM [Suspect]
     Active Substance: TORSEMIDE
     Dosage: 10 MILLIGRAM DAILY;
  8. NOVAMIN-TROPFEN (METAMIZOLE) [Suspect]
     Active Substance: METAMIZOLE
     Dosage: 40 GTT DAILY;
  9. JANUVIA [Suspect]
     Active Substance: SITAGLIPTIN PHOSPHATE
     Dosage: 25 MILLIGRAM DAILY;
  10. OPIPRAMOL [Suspect]
     Active Substance: OPIPRAMOL
     Dosage: 50 MILLIGRAM DAILY;
  11. TAMSULOSIN [Suspect]
     Active Substance: TAMSULOSIN
     Dosage: .4 MILLIGRAM DAILY;
  12. VIGANTOLETTEN [Suspect]
     Active Substance: CHOLECALCIFEROL
     Dosage: 1000 IU (INTERNATIONAL UNIT) DAILY;

REACTIONS (5)
  - Fall [Unknown]
  - Laceration [Unknown]
  - Dizziness [Unknown]
  - Fatigue [Unknown]
  - Upper limb fracture [Unknown]
